FAERS Safety Report 6733732-0 (Version None)
Quarter: 2010Q2

REPORT INFORMATION
  Report Type: 
  Country: None (occurrence: None)
  Receive Date: 20100520
  Receipt Date: 20100511
  Transmission Date: 20101027
  Serious: Yes (Hospitalization, Other)
  Sender: FDA-Public Use
  Company Number: PHHY2010BR30097

PATIENT
  Age: 43 Year
  Sex: Female

DRUGS (3)
  1. TRILEPTAL [Suspect]
     Dosage: UNK
     Route: 048
  2. TRILEPTAL [Suspect]
     Dosage: 30 DF, ONCE/SINGLE
     Route: 048
     Dates: start: 20100510
  3. ALCOHOL [Concomitant]
     Dosage: UNK

REACTIONS (6)
  - CONFUSIONAL STATE [None]
  - DEPRESSED LEVEL OF CONSCIOUSNESS [None]
  - INTENTIONAL OVERDOSE [None]
  - LETHARGY [None]
  - ROAD TRAFFIC ACCIDENT [None]
  - SOMNOLENCE [None]
